FAERS Safety Report 7777997-5 (Version None)
Quarter: 2011Q3

REPORT INFORMATION
  Report Type: 
  Country: None (occurrence: None)
  Receive Date: 20110926
  Receipt Date: 20110915
  Transmission Date: 20111222
  Serious: No
  Sender: FDA-Public Use
  Company Number: US-BIOGENIDEC-2011BI035544

PATIENT
  Age: 37 Year
  Sex: Female

DRUGS (4)
  1. AVONEX [Suspect]
     Route: 030
     Dates: start: 20100516, end: 20100516
  2. AVONEX [Suspect]
     Route: 030
     Dates: start: 20100523, end: 20100523
  3. AVONEX [Suspect]
     Route: 030
     Dates: start: 20100530, end: 20100530
  4. AVONEX [Suspect]
     Indication: MULTIPLE SCLEROSIS
     Route: 030
     Dates: start: 20100606

REACTIONS (5)
  - MONOCYTE COUNT DECREASED [None]
  - LYMPHOCYTE COUNT DECREASED [None]
  - INFLUENZA LIKE ILLNESS [None]
  - VITAMIN B12 DECREASED [None]
  - WHITE BLOOD CELL COUNT DECREASED [None]
